FAERS Safety Report 8801288 (Version 2)
Quarter: 2012Q4

REPORT INFORMATION
  Report Type: 
  Country: SE (occurrence: SE)
  Receive Date: 20120920
  Receipt Date: 20121105
  Transmission Date: 20130627
  Serious: Yes (Other)
  Sender: FDA-Public Use
  Company Number: SE-ROCHE-1129805

PATIENT
  Sex: Male

DRUGS (1)
  1. XOLAIR [Suspect]
     Route: 064
     Dates: start: 20070221

REACTIONS (4)
  - Asthma [Unknown]
  - Maternal exposure timing unspecified [Unknown]
  - Dermatitis atopic [Unknown]
  - Gastrooesophageal reflux disease [Unknown]
